FAERS Safety Report 9664731 (Version 1)
Quarter: 2013Q4

REPORT INFORMATION
  Report Type: Spontaneous
  Country: US (occurrence: US)
  Receive Date: 20131101
  Receipt Date: 20131101
  Transmission Date: 20140711
  Serious: No
  Sender: FDA-Public Use
  Company Number: US-B.I. PHARMACEUTICALS,INC./RIDGEFIELD-2013-BI-33779BP

PATIENT
  Age: 70 Year
  Sex: Female

DRUGS (3)
  1. GILOTRIF [Suspect]
     Indication: NON-SMALL CELL LUNG CANCER
     Dosage: 40 MG
     Route: 048
     Dates: start: 20130921, end: 20131016
  2. LOSARTAN / HYDROCHLOROTHIAZIDE [Concomitant]
     Indication: HYPERTENSION
     Dosage: STRENGTH: 50 / 12.5; DAILY DOSE: 50 / 12.5
     Route: 048
  3. OXYBUTYNIN ER [Concomitant]
     Indication: URINARY INCONTINENCE
     Dosage: 15 MG
     Route: 048

REACTIONS (7)
  - Nausea [Unknown]
  - Diarrhoea [Unknown]
  - Oropharyngeal pain [Not Recovered/Not Resolved]
  - Dry mouth [Not Recovered/Not Resolved]
  - Skin exfoliation [Unknown]
  - Onychomadesis [Recovered/Resolved]
  - Stomatitis [Not Recovered/Not Resolved]
